FAERS Safety Report 21259875 (Version 1)
Quarter: 2022Q3

REPORT INFORMATION
  Report Type: Report from Study
  Country: US (occurrence: US)
  Receive Date: 20220826
  Receipt Date: 20220826
  Transmission Date: 20221027
  Serious: No
  Sender: FDA-Public Use
  Company Number: US-BIOVITRUM-2022US09681

PATIENT
  Age: 53 Year
  Sex: Male

DRUGS (1)
  1. KINERET [Suspect]
     Active Substance: ANAKINRA
     Indication: Monoclonal gammopathy
     Dates: start: 20220418

REACTIONS (5)
  - White blood cell count decreased [Unknown]
  - Immunoglobulins decreased [Unknown]
  - COVID-19 [Unknown]
  - Osteoporosis [Unknown]
  - Off label use [Unknown]

NARRATIVE: CASE EVENT DATE: 20220418
